FAERS Safety Report 5612867-X (Version None)
Quarter: 2008Q1

REPORT INFORMATION
  Report Type: 
  Country: None (occurrence: None)
  Receive Date: 20080204
  Receipt Date: 20080124
  Transmission Date: 20080703
  Serious: Yes (Hospitalization)
  Sender: FDA-Public Use
  Company Number: FR-PFIZER INC-2008007976

PATIENT
  Sex: Female

DRUGS (8)
  1. TAHOR [Suspect]
     Route: 048
     Dates: start: 20020101, end: 20070907
  2. SERMION TABLET [Suspect]
     Route: 048
  3. EFFEXOR [Suspect]
     Route: 048
     Dates: start: 20020101, end: 20070907
  4. LEXOMIL [Suspect]
     Route: 048
     Dates: start: 20020101, end: 20070907
  5. MEGAMYLASE [Suspect]
     Dates: start: 20020101, end: 20070907
  6. BETASERC [Suspect]
     Route: 048
     Dates: start: 20070101, end: 20070907
  7. ACETAMINOPHEN [Suspect]
     Route: 048
  8. ABUFENE [Suspect]
     Route: 048

REACTIONS (1)
  - PANCYTOPENIA [None]
